FAERS Safety Report 7368390-8 (Version None)
Quarter: 2011Q1

REPORT INFORMATION
  Report Type: 
  Country: None (occurrence: None)
  Receive Date: 20110311
  Receipt Date: 20110228
  Transmission Date: 20110831
  Serious: Yes (Other)
  Sender: FDA-Public Use
  Company Number: UTKAB-11-0173

PATIENT
  Age: 55 Year
  Sex: Female

DRUGS (4)
  1. CARBOPLATNI(CARBOPLATIN) [Concomitant]
  2. ONDANSETRON [Concomitant]
  3. ABRAXANE [Suspect]
     Indication: OVARIAN EPITHELIAL CANCER
     Dosage: (350 MG)
     Dates: start: 20101125
  4. DEXAMETHASONE (DEXAMETHASONE) [Concomitant]

REACTIONS (1)
  - EMBOLISM ARTERIAL [None]
